FAERS Safety Report 8283182-3 (Version None)
Quarter: 2012Q2

REPORT INFORMATION
  Report Type: 
  Country: None (occurrence: None)
  Receive Date: 20120413
  Receipt Date: 20120404
  Transmission Date: 20120825
  Serious: Yes (Other)
  Sender: FDA-Public Use
  Company Number: CA-JNJFOC-20120402424

PATIENT
  Sex: Male
  Weight: 120.5 kg

DRUGS (16)
  1. AVANDAMET [Concomitant]
  2. NORVASC [Concomitant]
  3. NEXIUM [Concomitant]
  4. AVALIDE [Concomitant]
  5. ASPIRIN [Concomitant]
  6. EXTRA STRENGTH TYLENOL [Concomitant]
  7. REMICADE [Suspect]
     Indication: ANKYLOSING SPONDYLITIS
     Route: 042
     Dates: start: 20061201
  8. CITALOPRAM HYDROBROMIDE [Concomitant]
  9. SIMVASTATIN [Concomitant]
  10. METHOTREXATE [Concomitant]
  11. PERCOCET [Concomitant]
  12. CELEBREX [Concomitant]
  13. ATIVAN [Concomitant]
  14. ALTACE [Concomitant]
  15. FOLIC ACID [Concomitant]
  16. TYLENOL W/ CODEINE NO. 3 [Concomitant]

REACTIONS (1)
  - PANCREATITIS [None]
